FAERS Safety Report 12100082 (Version 1)
Quarter: 2016Q1

REPORT INFORMATION
  Report Type: Spontaneous
  Country: CA (occurrence: CA)
  Receive Date: 20160222
  Receipt Date: 20160222
  Transmission Date: 20160526
  Serious: Yes (Other)
  Sender: FDA-Public Use
  Company Number: CA-PFIZER INC-2016102196

PATIENT
  Age: 7 Year
  Sex: Female

DRUGS (1)
  1. CHILDRENS ADVIL [Suspect]
     Active Substance: IBUPROFEN
     Indication: PYREXIA
     Dosage: EVERY 6 HOURS
     Dates: start: 201602

REACTIONS (5)
  - Drug administration error [Unknown]
  - Condition aggravated [Unknown]
  - Inappropriate affect [Unknown]
  - Poor quality drug administered [Unknown]
  - Hallucination, visual [Unknown]

NARRATIVE: CASE EVENT DATE: 201602
